FAERS Safety Report 17802446 (Version 1)
Quarter: 2020Q2

REPORT INFORMATION
  Report Type: Spontaneous
  Country: US (occurrence: US)
  Receive Date: 20200516
  Receipt Date: 20200516
  Transmission Date: 20200714
  Serious: Yes (Hospitalization)
  Sender: FDA-Public Use
  Company Number: None

PATIENT
  Age: 22 Year
  Sex: Male

DRUGS (1)
  1. MARIJUANNA E-CIGARETTES [Suspect]
     Active Substance: CANNABIS SATIVA SUBSP. INDICA TOP\DEVICE

REACTIONS (10)
  - Decreased appetite [None]
  - Salivary hypersecretion [None]
  - Nausea [None]
  - Dyspnoea [None]
  - Constipation [None]
  - Gastrointestinal disorder [None]
  - Chills [None]
  - Chest pain [None]
  - Diarrhoea [None]
  - Pyrexia [None]

NARRATIVE: CASE EVENT DATE: 20200101
